FAERS Safety Report 17902320 (Version 2)
Quarter: 2022Q1

REPORT INFORMATION
  Report Type: Spontaneous
  Country: US (occurrence: US)
  Receive Date: 20200616
  Receipt Date: 20220223
  Transmission Date: 20220423
  Serious: Yes (Death, Other)
  Sender: FDA-Public Use
  Company Number: US-SAARTEMIS-SAC202006150164

PATIENT
  Age: 75 Year
  Sex: Female

DRUGS (2)
  1. ZANTAC [Suspect]
     Active Substance: RANITIDINE HYDROCHLORIDE
     Indication: Dyspepsia
     Dosage: 75 MG, QD
     Route: 065
     Dates: start: 199507, end: 201703
  2. ZANTAC [Suspect]
     Active Substance: RANITIDINE HYDROCHLORIDE
     Indication: Gastrooesophageal reflux disease
     Dosage: 150 MG, QD
     Dates: end: 201703

REACTIONS (2)
  - Colorectal cancer [Fatal]
  - Colorectal cancer stage IV [Not Recovered/Not Resolved]

NARRATIVE: CASE EVENT DATE: 20161201
